FAERS Safety Report 9232247 (Version 4)
Quarter: 2014Q2

REPORT INFORMATION
  Report Type: Report from Study
  Country: US (occurrence: US)
  Receive Date: 20130415
  Receipt Date: 20140502
  Transmission Date: 20141212
  Serious: Yes (Hospitalization, Disabling)
  Sender: FDA-Public Use
  Company Number: US-US-EMD SERONO, INC.-7204813

PATIENT
  Age: 67 Year
  Sex: Male

DRUGS (3)
  1. REBIF [Suspect]
     Indication: MULTIPLE SCLEROSIS
     Route: 058
     Dates: start: 20020903, end: 201303
  2. REBIF [Suspect]
     Route: 058
     Dates: start: 201304
  3. CLINDAMYCIN [Suspect]
     Indication: PRODUCT USED FOR UNKNOWN INDICATION

REACTIONS (8)
  - Clostridium difficile infection [Unknown]
  - Sepsis [Unknown]
  - Dehydration [Unknown]
  - Mobility decreased [Not Recovered/Not Resolved]
  - Urinary tract infection [Unknown]
  - Faecal incontinence [Unknown]
  - Dysphagia [Unknown]
  - Sleep apnoea syndrome [Unknown]
